FAERS Safety Report 19313678 (Version 1)
Quarter: 2021Q2

REPORT INFORMATION
  Report Type: Spontaneous
  Country: TR (occurrence: TR)
  Receive Date: 20210527
  Receipt Date: 20210527
  Transmission Date: 20210717
  Serious: Yes (Other)
  Sender: FDA-Public Use
  Company Number: TR-PFIZER INC-2021565227

PATIENT
  Age: 25 Year
  Sex: Female

DRUGS (1)
  1. CYTARABINE. [Suspect]
     Active Substance: CYTARABINE
     Indication: ACUTE MYELOMONOCYTIC LEUKAEMIA
     Dosage: 3 DOSES OF 6 G/M2/DAY AT 2 DAYS INTERVAL

REACTIONS (1)
  - Corneal toxicity [Recovered/Resolved]
